FAERS Safety Report 16739483 (Version 2)
Quarter: 2019Q3

REPORT INFORMATION
  Report Type: Report from Study
  Country: None (occurrence: RO)
  Receive Date: 20190826
  Receipt Date: 20190904
  Transmission Date: 20191005
  Serious: Yes (Hospitalization)
  Sender: FDA-Public Use
  Company Number: RO-ABBVIE-19K-135-2899874-00

PATIENT
  Sex: Female

DRUGS (2)
  1. DUODOPA [Suspect]
     Active Substance: CARBIDOPA\LEVODOPA
     Indication: PARKINSON^S DISEASE
     Dosage: DM=4.20, DC=3.40, ED=1.70, NRED=2; DMN=0.00, DCN=0.00, EDN=0.00, NREDN=0
     Route: 050
     Dates: start: 20151118
  2. DUODOPA [Suspect]
     Active Substance: CARBIDOPA\LEVODOPA
     Dosage: DM=0.50 DC=2.60 ED=1.30 NRED=2; DMN=0.00 DCN=0.00 EDN=0.00 NREDN=0
     Route: 050

REACTIONS (5)
  - Facial paresis [Unknown]
  - Drug ineffective [Unknown]
  - Dysarthria [Unknown]
  - General physical health deterioration [Recovered/Resolved]
  - Musculoskeletal disorder [Unknown]
